FAERS Safety Report 4366450-7 (Version None)
Quarter: 2004Q2

REPORT INFORMATION
  Report Type: 
  Country: None (occurrence: None)
  Receive Date: 20040527
  Receipt Date: 20040405
  Transmission Date: 20050107
  Serious: No
  Sender: FDA-Public Use
  Company Number: US-BRISTOL-MYERS SQUIBB COMPANY-12551206

PATIENT
  Age: 66 Year
  Sex: Male
  Weight: 72 kg

DRUGS (11)
  1. ERBITUX [Suspect]
     Indication: COLON CANCER
     Dosage: 1ST INFUSION. 2ND INFUSION DELAYED DUE TO EVENT.
     Route: 042
     Dates: start: 20040326, end: 20040326
  2. BENADRYL [Concomitant]
     Indication: PREMEDICATION
     Dosage: GIVEN AS PREMEDICATION BEFORE 1ST AND 2ND INFUSION (05-APR-04).
     Dates: start: 20040326, end: 20040326
  3. SPIRONOLACTONE [Concomitant]
  4. ZESTRIL [Concomitant]
  5. FLOMAX [Concomitant]
  6. NEXIUM [Concomitant]
  7. IRON [Concomitant]
  8. COREG [Concomitant]
  9. LIPITOR [Concomitant]
  10. RESTORIL [Concomitant]
  11. PAXIL [Concomitant]

REACTIONS (1)
  - DERMATITIS ACNEIFORM [None]
